FAERS Safety Report 24044989 (Version 2)
Quarter: 2024Q3

REPORT INFORMATION
  Report Type: Spontaneous
  Country: US (occurrence: US)
  Receive Date: 20240703
  Receipt Date: 20240705
  Transmission Date: 20241016
  Serious: No
  Sender: ROCHE
  Company Number: US-ROCHE-10000011113

PATIENT
  Sex: Female

DRUGS (1)
  1. VABYSMO [Suspect]
     Active Substance: FARICIMAB\FARICIMAB-SVOA
     Indication: Neovascular age-related macular degeneration
     Dosage: INJECTION
     Route: 065

REACTIONS (4)
  - Vitreous floaters [Recovered/Resolved]
  - Anxiety [Unknown]
  - Dizziness [Unknown]
  - Periorbital pain [Unknown]
